FAERS Safety Report 15781342 (Version 2)
Quarter: 2019Q1

REPORT INFORMATION
  Report Type: Spontaneous
  Country: US (occurrence: US)
  Receive Date: 20190102
  Receipt Date: 20190325
  Transmission Date: 20190417
  Serious: No
  Sender: FDA-Public Use
  Company Number: US-SA-2018SA397046

PATIENT
  Age: 51 Year
  Sex: Female

DRUGS (2)
  1. FLUOCINONIDE. [Concomitant]
     Active Substance: FLUOCINONIDE
  2. AUBAGIO [Suspect]
     Active Substance: TERIFLUNOMIDE
     Dosage: 14 MG, QD
     Route: 048
     Dates: start: 201707

REACTIONS (3)
  - Malaise [Not Recovered/Not Resolved]
  - Product dose omission [Not Recovered/Not Resolved]
  - Nasopharyngitis [Not Recovered/Not Resolved]
